FAERS Safety Report 8840326 (Version 2)
Quarter: 2012Q4

REPORT INFORMATION
  Report Type: 
  Country: US (occurrence: US)
  Receive Date: 20121015
  Receipt Date: 20121030
  Transmission Date: 20130627
  Serious: Yes (Death, Other)
  Sender: FDA-Public Use
  Company Number: US-BAXTER-2012BAX019716

PATIENT
  Age: 72 Year
  Sex: Female

DRUGS (6)
  1. DIANEAL PD2 [Suspect]
     Indication: AUTOMATED PERITONEAL DIALYSIS
     Route: 033
     Dates: end: 20121007
  2. DIANEAL PD2 [Suspect]
     Indication: AUTOMATED PERITONEAL DIALYSIS
  3. DIANEAL PD2 [Suspect]
     Indication: AUTOMATED PERITONEAL DIALYSIS
     Route: 033
     Dates: end: 20121007
  4. DIANEAL PD2 [Suspect]
     Indication: AUTOMATED PERITONEAL DIALYSIS
  5. DIANEAL PD2 [Suspect]
     Indication: AUTOMATED PERITONEAL DIALYSIS
     Route: 033
     Dates: end: 20121007
  6. DIANEAL PD2 [Suspect]
     Indication: AUTOMATED PERITONEAL DIALYSIS

REACTIONS (2)
  - Death [Fatal]
  - Hypophagia [Unknown]
